FAERS Safety Report 7400199-9 (Version None)
Quarter: 2011Q2

REPORT INFORMATION
  Report Type: 
  Country: None (occurrence: None)
  Receive Date: 20110407
  Receipt Date: 20110325
  Transmission Date: 20111010
  Serious: Yes (Death)
  Sender: FDA-Public Use
  Company Number: US-ACTELION-A-US2011-44988

PATIENT

DRUGS (10)
  1. TRACLEER [Suspect]
     Indication: PULMONARY ARTERIAL HYPERTENSION
     Dosage: 125 MG, BID
     Route: 048
     Dates: start: 20100611
  2. CELEXA [Concomitant]
  3. REVATIO [Concomitant]
  4. CARDIZEM [Concomitant]
  5. AMBIEN [Concomitant]
  6. OXYCODONE HCL [Concomitant]
  7. CATAPRES [Concomitant]
  8. CAPOTEN [Concomitant]
  9. PROTONIX [Concomitant]
  10. TRACLEER [Suspect]
     Dosage: 62.5 MG, BID
     Route: 048
     Dates: start: 20100511

REACTIONS (8)
  - PNEUMONIA [None]
  - LIVER FUNCTION TEST ABNORMAL [None]
  - HYPOGLYCAEMIA [None]
  - INTESTINAL ISCHAEMIA [None]
  - SYSTEMIC INFLAMMATORY RESPONSE SYNDROME [None]
  - ISCHAEMIC HEPATITIS [None]
  - ABDOMINAL PAIN [None]
  - PLATELET COUNT DECREASED [None]
